FAERS Safety Report 19724930 (Version 2)
Quarter: 2021Q3

REPORT INFORMATION
  Report Type: Spontaneous
  Country: DE (occurrence: DE)
  Receive Date: 20210820
  Receipt Date: 20210924
  Transmission Date: 20211014
  Serious: Yes (Other)
  Sender: FDA-Public Use
  Company Number: DE-SUN PHARMACEUTICAL INDUSTRIES LTD-2021RR-308498

PATIENT
  Sex: Female

DRUGS (1)
  1. CIPRO BASICS [Suspect]
     Active Substance: CIPROFLOXACIN HYDROCHLORIDE
     Indication: CYSTITIS
     Dosage: 2X500 MG A DAY
     Route: 065
     Dates: start: 20210711, end: 20210720

REACTIONS (21)
  - Adverse drug reaction [Unknown]
  - Arrhythmia [Unknown]
  - Bradycardia [Unknown]
  - Tendonitis [Unknown]
  - Headache [Unknown]
  - Blood pressure fluctuation [Unknown]
  - Abdominal pain [Unknown]
  - Diarrhoea [Unknown]
  - Fatigue [Unknown]
  - General physical health deterioration [Unknown]
  - Blood cholesterol increased [Unknown]
  - Zinc deficiency [Unknown]
  - Malaise [Unknown]
  - Dizziness [Unknown]
  - Arthralgia [Unknown]
  - Myalgia [Unknown]
  - Sleep disorder [Unknown]
  - Magnesium deficiency [Unknown]
  - Feeling abnormal [Unknown]
  - Blood uric acid abnormal [Unknown]
  - Listless [Unknown]
